FAERS Safety Report 4991344-3 (Version None)
Quarter: 2006Q2

REPORT INFORMATION
  Report Type: 
  Country: None (occurrence: None)
  Receive Date: 20060501
  Receipt Date: 20060501
  Transmission Date: 20061013
  Serious: Yes (Death, Hospitalization)
  Sender: FDA-Public Use
  Company Number: None

PATIENT
  Sex: Female
  Weight: 98.63 kg

DRUGS (1)
  1. TEMOZOLOMIDE [Suspect]
     Indication: GLIOBLASTOMA MULTIFORME
     Dosage: 150 MG
     Dates: start: 20060424, end: 20060424

REACTIONS (4)
  - DISEASE PROGRESSION [None]
  - DYSPHAGIA [None]
  - NEUROLOGICAL SYMPTOM [None]
  - VOMITING [None]
